FAERS Safety Report 4301709-0 (Version None)
Quarter: 2004Q1

REPORT INFORMATION
  Report Type: 
  Country: None (occurrence: None)
  Receive Date: 20040126
  Receipt Date: 20031002
  Transmission Date: 20041129
  Serious: No
  Sender: FDA-Public Use
  Company Number: USA031048825

PATIENT
  Age: 11 Year
  Sex: Female
  Weight: 34 kg

DRUGS (5)
  1. STRATTERA [Suspect]
     Indication: ATTENTION DEFICIT/HYPERACTIVITY DISORDER
     Dosage: 60 MG/1 IN THE MORNING
     Dates: start: 20030801
  2. ADVAIR DISKUS 100/50 [Concomitant]
  3. NASACORT [Concomitant]
  4. ZYRTEC [Concomitant]
  5. ALBUTEROL [Concomitant]

REACTIONS (2)
  - MYDRIASIS [None]
  - PRESCRIBED OVERDOSE [None]
